FAERS Safety Report 9778532 (Version 2)
Quarter: 2013Q4

REPORT INFORMATION
  Report Type: Report from Study
  Country: DE (occurrence: DE)
  Receive Date: 20131223
  Receipt Date: 20131223
  Transmission Date: 20140711
  Serious: Yes (Hospitalization, Other)
  Sender: FDA-Public Use
  Company Number: DE-ABBVIE-12P-062-0980607-00

PATIENT
  Sex: Male
  Weight: 70 kg

DRUGS (2)
  1. HUMIRA [Suspect]
     Indication: CROHN^S DISEASE
     Route: 058
     Dates: start: 201204, end: 20120813
  2. HUMIRA [Suspect]
     Route: 058
     Dates: start: 20131212

REACTIONS (12)
  - Intestinal stenosis [Recovered/Resolved]
  - Pneumonia klebsiella [Recovered/Resolved]
  - Colitis [Recovered/Resolved]
  - Pseudopolyp [Recovered/Resolved]
  - Weight decreased [Recovered/Resolved]
  - Faeces soft [Recovered/Resolved]
  - Mucous stools [Recovered/Resolved]
  - Intestinal fistula [Recovered/Resolved]
  - Anal fistula [Recovered/Resolved]
  - Ileus [Recovered/Resolved]
  - Intestinal perforation [Recovered/Resolved]
  - Abscess [Recovered/Resolved]
